FAERS Safety Report 9211876 (Version 1)
Quarter: 2013Q2

REPORT INFORMATION
  Report Type: Spontaneous
  Country: US (occurrence: US)
  Receive Date: 20130404
  Receipt Date: 20130404
  Transmission Date: 20140414
  Serious: Yes (Other)
  Sender: FDA-Public Use
  Company Number: US-AMGEN-USASP2013016989

PATIENT
  Age: 63 Year
  Sex: Female
  Weight: 108.84 kg

DRUGS (8)
  1. ENBREL [Suspect]
     Indication: PSORIASIS
     Dosage: 50 MG, 2 TIMES/WK
     Dates: start: 20130101
  2. ENBREL [Suspect]
     Indication: PSORIATIC ARTHROPATHY
  3. PAXIL                              /00500401/ [Concomitant]
     Indication: DEPRESSION
     Dosage: 20 MG, QD
     Route: 048
  4. PAXIL                              /00500401/ [Concomitant]
     Indication: ANXIETY
  5. FISH OIL [Concomitant]
     Indication: MEDICAL DIET
     Dosage: 1000 UNK, QD
     Route: 048
  6. CARDIOL                            /00183101/ [Concomitant]
     Indication: MEDICAL DIET
     Dosage: 3 MG, QD
     Route: 048
  7. ELIDEL [Concomitant]
     Indication: PSORIASIS
     Dosage: 1 %, BID
     Route: 061
     Dates: start: 20120405
  8. FLUOCINONIDE [Concomitant]
     Indication: PSORIASIS
     Dosage: 0.05 UNK, BID
     Route: 061
     Dates: start: 200911

REACTIONS (5)
  - Squamous cell carcinoma of skin [Recovered/Resolved]
  - Basal cell carcinoma [Recovered/Resolved]
  - Headache [Not Recovered/Not Resolved]
  - Psoriasis [Recovered/Resolved]
  - Injection site discomfort [Not Recovered/Not Resolved]
